FAERS Safety Report 10150402 (Version 2)
Quarter: 2021Q1

REPORT INFORMATION
  Report Type: Spontaneous
  Country: US (occurrence: US)
  Receive Date: 20140502
  Receipt Date: 20210212
  Transmission Date: 20210419
  Serious: Yes (Death, Other)
  Sender: FDA-Public Use
  Company Number: US-MERCK-1404USA014821

PATIENT
  Age: 37 Year
  Sex: Male

DRUGS (1)
  1. PROPECIA [Suspect]
     Active Substance: FINASTERIDE
     Indication: PRODUCT USED FOR UNKNOWN INDICATION
     Dosage: 1 MG, UNK
     Route: 048
     Dates: start: 201305

REACTIONS (2)
  - Completed suicide [Fatal]
  - Post 5-alpha-reductase inhibitor syndrome [Not Recovered/Not Resolved]

NARRATIVE: CASE EVENT DATE: 201305
